FAERS Safety Report 4316924-X (Version None)
Quarter: 2004Q1

REPORT INFORMATION
  Report Type: 
  Country: None (occurrence: None)
  Receive Date: 20040304
  Receipt Date: 20040213
  Transmission Date: 20041129
  Serious: Yes (Other)
  Sender: FDA-Public Use
  Company Number: 600860

PATIENT
  Age: 78 Year
  Sex: Female

DRUGS (1)
  1. BUMINATE [Suspect]
     Indication: HYPOTENSION
     Dosage: 1 VIAL; ONCE;
     Dates: start: 20021210, end: 20021210

REACTIONS (1)
  - HEPATITIS C ANTIBODY POSITIVE [None]
